FAERS Safety Report 6007922-9 (Version None)
Quarter: 2008Q4

REPORT INFORMATION
  Report Type: 
  Country: None (occurrence: None)
  Receive Date: 20081217
  Receipt Date: 20080728
  Transmission Date: 20090506
  Serious: No
  Sender: FDA-Public Use
  Company Number: US-ASTRAZENECA-2008UW11759

PATIENT
  Age: 60 Year
  Sex: Female
  Weight: 77.1 kg

DRUGS (8)
  1. CRESTOR [Suspect]
     Indication: BLOOD CHOLESTEROL
     Route: 048
  2. SPIRONOLACTONE [Concomitant]
  3. CYMBALTA [Concomitant]
  4. TOPAMAX [Concomitant]
  5. ASPIRIN [Concomitant]
  6. FOSAMAX [Concomitant]
  7. LIPITOR [Concomitant]
  8. THYROID PILL [Concomitant]

REACTIONS (3)
  - HEADACHE [None]
  - NAUSEA [None]
  - TEMPERATURE INTOLERANCE [None]
